FAERS Safety Report 7368562-2 (Version None)
Quarter: 2011Q1

REPORT INFORMATION
  Report Type: 
  Country: None (occurrence: None)
  Receive Date: 20110314
  Receipt Date: 20101105
  Transmission Date: 20110831
  Serious: Yes (Congenital Anomaly, Other)
  Sender: FDA-Public Use
  Company Number: 1000017398

PATIENT
  Sex: Female
  Weight: 3.15 kg

DRUGS (5)
  1. VENLAFAXINE [Suspect]
     Dosage: (150 MG), TRANSPLACENTAL
     Route: 064
  2. CAMPRAL [Suspect]
     Indication: ALCOHOLISM
     Dosage: 1998 GM, TRANSPLACENTAL
     Route: 064
     Dates: start: 20100301, end: 20100701
  3. PROPRANOLOL [Suspect]
     Dosage: (40 MG), TRANSPLACENTAL
     Route: 064
  4. VITAMIN B (VITAMIN B) (TABLETS) [Suspect]
     Dosage: 2 DOSAGES FORM (1 DOSAGE FORMS, 2 IN 1 D), TRANSPLACENTAL
     Route: 064
     Dates: start: 20100301
  5. THIAMINE (THIAMINE) [Suspect]
     Dosage: 200 MG (200 MG, 1 IN 1 D), TRANSPLACENTAL
     Route: 064
     Dates: start: 20100301

REACTIONS (2)
  - FOETAL ALCOHOL SYNDROME [None]
  - MATERNAL DRUGS AFFECTING FOETUS [None]
